FAERS Safety Report 23845103 (Version 1)
Quarter: 2024Q2

REPORT INFORMATION
  Report Type: Spontaneous
  Country: US (occurrence: US)
  Receive Date: 20240511
  Receipt Date: 20240511
  Transmission Date: 20240716
  Serious: No
  Sender: FDA-Public Use
  Company Number: US-CIPLA LTD.-2023US06562

PATIENT

DRUGS (3)
  1. ALBUTEROL [Suspect]
     Active Substance: ALBUTEROL
     Indication: Product used for unknown indication
     Dosage: UNK, PRN (DOSE AND FREQUENCY AS NEEDED)
     Route: 065
  2. ERYTHROMYCIN [Concomitant]
     Active Substance: ERYTHROMYCIN
     Indication: Product used for unknown indication
     Dosage: UNK, 250 MILLIGRAM, 1 TABLET
     Route: 065
     Dates: start: 20231012
  3. BENZONATATE [Concomitant]
     Active Substance: BENZONATATE
     Indication: Product used for unknown indication
     Dosage: 200 MILLIGRAM, TID (1 CAPSULE TRICE A DAY)
     Route: 065
     Dates: start: 20231012

REACTIONS (4)
  - Cough [Not Recovered/Not Resolved]
  - Device delivery system issue [Unknown]
  - Wrong technique in product usage process [Unknown]
  - Dyspnoea [Not Recovered/Not Resolved]
